FAERS Safety Report 17356726 (Version 3)
Quarter: 2020Q1

REPORT INFORMATION
  Report Type: Spontaneous
  Country: ES (occurrence: ES)
  Receive Date: 20200131
  Receipt Date: 20200211
  Transmission Date: 20200409
  Serious: Yes (Other)
  Sender: FDA-Public Use
  Company Number: ES-PFIZER INC-2020039032

PATIENT
  Age: 77 Year
  Sex: Male

DRUGS (2)
  1. VORICONAZOLE. [Suspect]
     Active Substance: VORICONAZOLE
     Indication: MASTOIDITIS
     Dosage: 200 MG, 2X/DAY (EVERY 12 HOURS)
     Route: 042
  2. TRAMADOL. [Concomitant]
     Active Substance: TRAMADOL
     Dosage: UNK

REACTIONS (3)
  - Agitation [Unknown]
  - Nightmare [Unknown]
  - Hallucination, visual [Unknown]
